FAERS Safety Report 6733393-0 (Version None)
Quarter: 2010Q2

REPORT INFORMATION
  Report Type: 
  Country: None (occurrence: None)
  Receive Date: 20100520
  Receipt Date: 20100430
  Transmission Date: 20101027
  Serious: Yes (Hospitalization, Other)
  Sender: FDA-Public Use
  Company Number: US-BAYER-201013288NA

PATIENT
  Age: 21 Year
  Sex: Female
  Weight: 91 kg

DRUGS (7)
  1. YAZ [Suspect]
     Indication: DRUG USE FOR UNKNOWN INDICATION
     Route: 048
  2. PEPTO BISMOL [Concomitant]
     Indication: ABDOMINAL DISCOMFORT
     Dates: start: 20090801, end: 20090801
  3. ANTIBIOTICS [Concomitant]
  4. THYROID MEDICATION [Concomitant]
  5. LEVOXYL [Concomitant]
  6. LEXAPRO [Concomitant]
  7. CLARITIN-D [Concomitant]

REACTIONS (5)
  - ABDOMINAL PAIN UPPER [None]
  - BACK PAIN [None]
  - CHOLELITHIASIS [None]
  - NAUSEA [None]
  - VOMITING [None]
